FAERS Safety Report 18680748 (Version 1)
Quarter: 2020Q4

REPORT INFORMATION
  Report Type: Spontaneous
  Country: US (occurrence: US)
  Receive Date: 20201229
  Receipt Date: 20201229
  Transmission Date: 20210114
  Serious: No
  Sender: FDA-Public Use
  Company Number: US-CLOVIS ONCOLOGY-CLO-2020-002118

PATIENT
  Sex: Female

DRUGS (9)
  1. IBUPROFEN. [Concomitant]
     Active Substance: IBUPROFEN
     Indication: NEUROPATHY PERIPHERAL
  2. RUBRACA [Suspect]
     Active Substance: RUCAPARIB CAMSYLATE
     Dosage: CUTTING THE 300MG TABLETS IN HALF
     Route: 048
     Dates: start: 2020, end: 2020
  3. RUBRACA [Suspect]
     Active Substance: RUCAPARIB CAMSYLATE
     Dosage: 2 - 200MG IN AM
     Route: 048
     Dates: start: 2020, end: 20201015
  4. IBUPROFEN. [Concomitant]
     Active Substance: IBUPROFEN
     Indication: ARTHRITIS
  5. RUBRACA [Suspect]
     Active Substance: RUCAPARIB CAMSYLATE
     Indication: OVARIAN CANCER
     Dosage: 600 MG, BID
     Route: 048
     Dates: start: 202001, end: 2020
  6. RUBRACA [Suspect]
     Active Substance: RUCAPARIB CAMSYLATE
     Dosage: 2 -250MG IN PM
     Route: 048
     Dates: start: 2020, end: 20201015
  7. RUBRACA [Suspect]
     Active Substance: RUCAPARIB CAMSYLATE
     Dosage: 2-200 MG IN PM
     Route: 048
     Dates: start: 20201016
  8. RUBRACA [Suspect]
     Active Substance: RUCAPARIB CAMSYLATE
     Dosage: 2-250 MG IN AM
     Route: 048
     Dates: start: 20201016
  9. IBUPROFEN. [Concomitant]
     Active Substance: IBUPROFEN
     Indication: FOOT DEFORMITY

REACTIONS (5)
  - Insomnia [Recovering/Resolving]
  - Anaemia [Recovered/Resolved]
  - Drug intolerance [Recovering/Resolving]
  - Ingrowing nail [Recovered/Resolved]
  - Blood creatinine increased [Recovered/Resolved]

NARRATIVE: CASE EVENT DATE: 2020
